FAERS Safety Report 23707464 (Version 2)
Quarter: 2024Q2

REPORT INFORMATION
  Report Type: Report from Study
  Country: US (occurrence: US)
  Receive Date: 20240404
  Receipt Date: 20240501
  Transmission Date: 20240716
  Serious: No
  Sender: FDA-Public Use
  Company Number: US-ALXN-202403USA002013US

PATIENT
  Sex: Male

DRUGS (1)
  1. STRENSIQ [Suspect]
     Active Substance: ASFOTASE ALFA
     Indication: Product used for unknown indication
     Dosage: 160 MILLIGRAM, TIW
     Route: 065

REACTIONS (7)
  - Feeling abnormal [Unknown]
  - Weight increased [Recovered/Resolved]
  - Peripheral swelling [Unknown]
  - Fatigue [Unknown]
  - Apathy [Unknown]
  - Arthralgia [Recovered/Resolved]
  - Nausea [Unknown]
